FAERS Safety Report 21525341 (Version 3)
Quarter: 2022Q4

REPORT INFORMATION
  Report Type: Spontaneous
  Country: GR (occurrence: GR)
  Receive Date: 20221030
  Receipt Date: 20221116
  Transmission Date: 20230113
  Serious: Yes (Disabling)
  Sender: FDA-Public Use
  Company Number: GR-NOVARTISPH-NVSC2022GR242437

PATIENT
  Sex: Male

DRUGS (1)
  1. VOLTAREN [Suspect]
     Active Substance: DICLOFENAC SODIUM
     Indication: Product used for unknown indication
     Dosage: 50 MG
     Route: 065

REACTIONS (4)
  - Pain [Unknown]
  - Gait disturbance [Unknown]
  - Headache [Unknown]
  - Somnolence [Unknown]
